FAERS Safety Report 4476429-2 (Version None)
Quarter: 2004Q4

REPORT INFORMATION
  Report Type: 
  Country: None (occurrence: None)
  Receive Date: 20041016
  Receipt Date: 20041007
  Transmission Date: 20050328
  Serious: Yes (Disabling)
  Sender: FDA-Public Use
  Company Number: IE-MERCK-0410GBR00088

PATIENT
  Sex: Female

DRUGS (2)
  1. HYDROCORTONE [Suspect]
     Indication: ADRENOCORTICAL INSUFFICIENCY CHRONIC
     Route: 048
  2. HYDROCORTONE [Suspect]
     Route: 048

REACTIONS (3)
  - ARTHRALGIA [None]
  - ASTHENIA [None]
  - PAIN [None]
